FAERS Safety Report 6849160-3 (Version None)
Quarter: 2010Q3

REPORT INFORMATION
  Report Type: 
  Country: None (occurrence: None)
  Receive Date: 20100716
  Receipt Date: 20100707
  Transmission Date: 20110219
  Serious: Yes (Other)
  Sender: FDA-Public Use
  Company Number: PHHY2010JP44807

PATIENT
  Age: 16 Year
  Sex: Male

DRUGS (9)
  1. NEORAL [Suspect]
     Indication: EPSTEIN-BARR VIRUS INFECTION
     Dosage: 150 MG, DAILY
     Dates: start: 20100101
  2. NEORAL [Suspect]
     Dosage: 75 MG. DAILY
  3. NEORAL [Suspect]
     Dosage: 100 MG, DAILY
  4. NEORAL [Suspect]
     Dosage: 50 MG, DAILY
  5. PREDNISOLONE [Concomitant]
     Indication: EPSTEIN-BARR VIRUS INFECTION
     Dosage: 50 MG
     Dates: start: 20090501
  6. PREDNISOLONE [Concomitant]
     Dosage: 40 MG
  7. PREDNISOLONE [Concomitant]
     Dosage: 35 MG
  8. PREDNISOLONE [Concomitant]
     Dosage: 50 MG
  9. ETOPOSIDE [Concomitant]
     Dosage: 200 MG
     Dates: start: 20100101

REACTIONS (1)
  - LIVER DISORDER [None]
